FAERS Safety Report 8531230 (Version 2)
Quarter: 2012Q4

REPORT INFORMATION
  Report Type: Report from Study
  Country: JP (occurrence: JP)
  Receive Date: 20120426
  Receipt Date: 20121218
  Transmission Date: 20130627
  Serious: Yes (Other)
  Sender: FDA-Public Use
  Company Number: PHHY2012JP034614

PATIENT
  Sex: Female
  Weight: 103 kg

DRUGS (17)
  1. ICL670A [Suspect]
     Indication: MYELODYSPLASTIC SYNDROME
     Dosage: 1000 mg, daily
     Route: 048
     Dates: start: 20100226, end: 20100325
  2. ICL670A [Suspect]
     Dosage: 1500 mg, daily
     Route: 048
     Dates: start: 20100701, end: 20110407
  3. ICL670A [Suspect]
     Dosage: 500 mg, daily
     Route: 048
     Dates: start: 20111110, end: 20111208
  4. ICL670A [Suspect]
     Dosage: 1000 mg, daily
     Route: 048
     Dates: start: 20111208
  5. DESFERAL [Concomitant]
     Indication: IRON OVERLOAD
     Dosage: 1000 mg, UNK
     Route: 030
     Dates: start: 20080611, end: 20110825
  6. NEORAL [Concomitant]
     Indication: MYELODYSPLASTIC SYNDROME
     Dosage: 200 mg, UNK
     Route: 048
     Dates: start: 20110728
  7. DIOVAN [Concomitant]
     Dosage: 80 mg, UNK
     Route: 048
     Dates: start: 20110901
  8. MYSLEE [Concomitant]
     Dosage: 10 mg
     Route: 048
     Dates: start: 20100226
  9. MYSLEE [Concomitant]
     Dosage: 10 mg
     Route: 048
  10. AMARYL [Concomitant]
     Indication: TYPE 2 DIABETES MELLITUS
     Dosage: 6 mg
     Route: 048
     Dates: start: 20100226
  11. AMARYL [Concomitant]
     Dosage: 6 mg
     Route: 048
  12. MELBIN [Concomitant]
     Indication: TYPE 2 DIABETES MELLITUS
     Dosage: 500 mg
     Route: 048
     Dates: start: 20110226
  13. ADALAT CR [Concomitant]
     Dosage: 20 mg, UNK
     Route: 048
     Dates: start: 20111201
  14. METFORMIN HYDROCHLORIDE [Concomitant]
     Indication: TYPE 2 DIABETES MELLITUS
     Dosage: 500 mg, UNK
     Route: 048
     Dates: start: 20110623
  15. RED BLOOD CELLS, CONCENTRATED [Concomitant]
     Dosage: 2 U, every 2 weeks
     Dates: start: 20100212, end: 20100909
  16. RED BLOOD CELLS, CONCENTRATED [Concomitant]
     Dosage: 4 U, every 2 weeks
     Dates: start: 20100909, end: 20101007
  17. RED BLOOD CELLS, CONCENTRATED [Concomitant]
     Dosage: 2 U, every 2 weeks
     Dates: start: 20110401, end: 20110825

REACTIONS (1)
  - Haemolytic anaemia [Unknown]
